FAERS Safety Report 25544411 (Version 1)
Quarter: 2025Q3

REPORT INFORMATION
  Report Type: Other
  Country: US (occurrence: US)
  Receive Date: 20250711
  Receipt Date: 20250711
  Transmission Date: 20251021
  Serious: Yes (Death, Other)
  Sender: SECURA BIO
  Company Number: US-SECURA BIO, INC.-2022-SECUR-US000076

PATIENT

DRUGS (2)
  1. COPIKTRA [Suspect]
     Active Substance: DUVELISIB
     Indication: Metastatic squamous cell carcinoma
     Route: 065
  2. DOCETAXEL [Suspect]
     Active Substance: DOCETAXEL
     Indication: Metastatic squamous cell carcinoma
     Route: 065

REACTIONS (8)
  - Weight decreased [Fatal]
  - Pneumonia aspiration [Fatal]
  - Dysphagia [Fatal]
  - Mucosal inflammation [Fatal]
  - Cardiac arrest [Fatal]
  - Gastrointestinal haemorrhage [Fatal]
  - Viraemia [Fatal]
  - Enterocolitis [Fatal]

NARRATIVE: CASE EVENT DATE: 20220108
